FAERS Safety Report 16390690 (Version 1)
Quarter: 2019Q2

REPORT INFORMATION
  Report Type: Spontaneous
  Country: US (occurrence: US)
  Receive Date: 20190604
  Receipt Date: 20190604
  Transmission Date: 20190711
  Serious: Yes (Disabling, Other)
  Sender: FDA-Public Use
  Company Number: US-009507513-1905USA013547

PATIENT
  Age: 67 Year
  Sex: Female

DRUGS (6)
  1. MAGNESIUM (UNSPECIFIED) [Concomitant]
     Active Substance: MAGNESIUM
  2. ZETIA [Suspect]
     Active Substance: EZETIMIBE
     Indication: BLOOD CHOLESTEROL INCREASED
     Dosage: 10 MILLIGRAM / 1 TAB DAILY AT NIGHT TIME
     Route: 048
     Dates: start: 201806, end: 20190527
  3. VITAMINS (UNSPECIFIED) [Concomitant]
     Active Substance: VITAMINS
  4. TURMERIC [Concomitant]
     Active Substance: HERBALS\TURMERIC
  5. UBIDECARENONE [Concomitant]
     Active Substance: UBIDECARENONE
  6. VITAMIN SOURCE GLUCOSAMINE CHONDROITIN MSM [Concomitant]

REACTIONS (2)
  - Polymyalgia rheumatica [Not Recovered/Not Resolved]
  - Pollakiuria [Not Recovered/Not Resolved]

NARRATIVE: CASE EVENT DATE: 201809
